FAERS Safety Report 7465201-7 (Version None)
Quarter: 2011Q2

REPORT INFORMATION
  Report Type: 
  Country: None (occurrence: None)
  Receive Date: 20110509
  Receipt Date: 20110425
  Transmission Date: 20111010
  Serious: Yes (Hospitalization)
  Sender: FDA-Public Use
  Company Number: PHHY2011AR34611

PATIENT
  Sex: Male

DRUGS (3)
  1. CLOZAPINE [Suspect]
     Indication: SCHIZOPHRENIA, PARANOID TYPE
     Dosage: 50 MG, QD
     Dates: start: 20061106
  2. HALOPIDOL [Concomitant]
  3. LEVOMEPROMAZINE [Concomitant]

REACTIONS (3)
  - PSYCHIATRIC DECOMPENSATION [None]
  - SCHIZOPHRENIA, PARANOID TYPE [None]
  - DISORIENTATION [None]
